FAERS Safety Report 15539249 (Version 2)
Quarter: 2019Q2

REPORT INFORMATION
  Report Type: Report from Study
  Country: FR (occurrence: FR)
  Receive Date: 20181022
  Receipt Date: 20190531
  Transmission Date: 20190711
  Serious: Yes (Hospitalization)
  Sender: FDA-Public Use
  Company Number: FR-BIOVITRUM-2017BV000382

PATIENT
  Age: 51 Year
  Sex: Male
  Weight: 49 kg

DRUGS (4)
  1. RENUTRYL [Concomitant]
     Indication: NUTRITIONAL SUPPLEMENTATION
     Dosage: UNK, UNK
     Route: 048
  2. ZAMUDOL [Concomitant]
     Active Substance: TRAMADOL HYDROCHLORIDE
     Indication: PAIN
     Dosage: 500 MG, UNK
     Route: 048
  3. TRIUMEQ [Concomitant]
     Active Substance: ABACAVIR SULFATE\DOLUTEGRAVIR SODIUM\LAMIVUDINE
     Indication: HIV INFECTION
     Dosage: UNK UNK, UNK
     Route: 048
  4. EFMOROCTOCOG ALFA [Suspect]
     Active Substance: EFMOROCTOCOG ALFA
     Indication: FACTOR VIII DEFICIENCY
     Dosage: 41 IU/KG INJECTION ON DEMAND
     Route: 042
     Dates: start: 20170906, end: 20171017

REACTIONS (2)
  - Haematuria [Recovered/Resolved]
  - Factor VIII inhibition [Recovered/Resolved]

NARRATIVE: CASE EVENT DATE: 20171018
